FAERS Safety Report 7702243-8 (Version None)
Quarter: 2011Q3

REPORT INFORMATION
  Report Type: 
  Country: None (occurrence: None)
  Receive Date: 20110822
  Receipt Date: 20110812
  Transmission Date: 20111222
  Serious: Yes (Other)
  Sender: FDA-Public Use
  Company Number: US-PFIZER INC-2009251327

PATIENT
  Sex: Female
  Weight: 51.7 kg

DRUGS (10)
  1. VICODIN [Concomitant]
     Indication: MIGRAINE
     Dosage: UNK
     Dates: start: 19720101, end: 19990101
  2. PROVERA [Suspect]
     Indication: HORMONE REPLACEMENT THERAPY
     Dosage: 0.5 MG, UNK
     Route: 048
     Dates: start: 19861201, end: 19970701
  3. ESTRATEST H.S. [Suspect]
     Indication: HORMONE REPLACEMENT THERAPY
     Dosage: UNK
     Dates: start: 19960601, end: 19960701
  4. PREVACID [Concomitant]
     Indication: GASTROOESOPHAGEAL REFLUX DISEASE
     Dosage: UNK
     Dates: start: 19900101
  5. CORZIDE ^MONARCH^ [Concomitant]
     Indication: HYPERTENSION
     Dosage: UNK
     Dates: start: 19850101
  6. PREMARIN [Suspect]
     Indication: HORMONE REPLACEMENT THERAPY
     Dosage: 0.625 MG, UNK
     Route: 048
     Dates: start: 19861201, end: 19970701
  7. SYNTHROID [Concomitant]
     Indication: HYPOTHYROIDISM
     Dosage: UNK
     Dates: start: 19800101
  8. WARFARIN SODIUM [Concomitant]
     Indication: CEREBROVASCULAR ACCIDENT
  9. PREMPRO [Suspect]
     Indication: HORMONE REPLACEMENT THERAPY
     Dosage: 0.625/0.5MG
     Route: 048
     Dates: start: 19960801, end: 19970101
  10. WARFARIN SODIUM [Concomitant]
     Indication: COAGULOPATHY
     Dosage: UNK
     Dates: start: 19920101

REACTIONS (1)
  - BREAST CANCER FEMALE [None]
